FAERS Safety Report 8821438 (Version 1)
Quarter: 2012Q4

REPORT INFORMATION
  Report Type: 
  Country: US (occurrence: US)
  Receive Date: 20121002
  Receipt Date: 20121002
  Transmission Date: 20130627
  Serious: Yes (Hospitalization, Other)
  Sender: FDA-Public Use
  Company Number: US-ROCHE-784749

PATIENT
  Age: 15 Year
  Sex: Male
  Weight: 63.56 kg

DRUGS (3)
  1. ACCUTANE [Suspect]
     Indication: ACNE
     Route: 065
     Dates: start: 19970206, end: 19970705
  2. CLEOCIN T [Concomitant]
  3. RETIN A CREAM [Concomitant]

REACTIONS (10)
  - Colitis ulcerative [Unknown]
  - Inflammatory bowel disease [Unknown]
  - Stress [Unknown]
  - Depression [Unknown]
  - Perirectal abscess [Unknown]
  - Arthralgia [Unknown]
  - Lip dry [Unknown]
  - Dry skin [Unknown]
  - Dry skin [Unknown]
  - Arthralgia [Unknown]
